FAERS Safety Report 25269414 (Version 1)
Quarter: 2025Q2

REPORT INFORMATION
  Report Type: Report from Study
  Country: US (occurrence: US)
  Receive Date: 20250505
  Receipt Date: 20250505
  Transmission Date: 20250716
  Serious: Yes (Death)
  Sender: BAYER HEALTHCARE PHARMACEUTICALS INC.
  Company Number: US-BAYER-2025A059473

PATIENT
  Sex: Female
  Weight: 85.714 kg

DRUGS (7)
  1. ADEMPAS [Suspect]
     Active Substance: RIOCIGUAT
     Indication: Pulmonary arterial hypertension
     Dates: start: 20181102
  2. ADEMPAS [Suspect]
     Active Substance: RIOCIGUAT
     Indication: Pulmonary arterial hypertension
     Dosage: 2.5 MG, TID
     Route: 048
  3. FUROSEMIDE [Concomitant]
     Active Substance: FUROSEMIDE
  4. TYVASO [Concomitant]
     Active Substance: TREPROSTINIL
  5. ELIQUIS [Concomitant]
     Active Substance: APIXABAN
  6. TYLENOL ARTHRITIS PAIN [Concomitant]
     Active Substance: ACETAMINOPHEN
  7. OXYGEN [Concomitant]
     Active Substance: OXYGEN

REACTIONS (1)
  - Death [Fatal]
